FAERS Safety Report 23196219 (Version 4)
Quarter: 2023Q4

REPORT INFORMATION
  Report Type: Spontaneous
  Country: US (occurrence: US)
  Receive Date: 20231117
  Receipt Date: 20231219
  Transmission Date: 20240110
  Serious: Yes (Other)
  Sender: FDA-Public Use
  Company Number: US-MYLANLABS-2023M1120736

PATIENT
  Sex: Male
  Weight: 101.15 kg

DRUGS (1)
  1. WIXELA INHUB [Suspect]
     Active Substance: FLUTICASONE PROPIONATE\SALMETEROL XINAFOATE
     Indication: Asthma
     Dosage: UNK (500/50 MICROGRAM TWICE DAILY)
     Route: 055
     Dates: start: 202108, end: 20230928

REACTIONS (11)
  - Cerebrovascular accident [Not Recovered/Not Resolved]
  - Facial paralysis [Not Recovered/Not Resolved]
  - Visual impairment [Unknown]
  - Muscle spasms [Not Recovered/Not Resolved]
  - Muscle twitching [Not Recovered/Not Resolved]
  - Hypoaesthesia [Not Recovered/Not Resolved]
  - Paraesthesia [Not Recovered/Not Resolved]
  - Fine motor skill dysfunction [Unknown]
  - Headache [Unknown]
  - Tremor [Unknown]
  - Vision blurred [Not Recovered/Not Resolved]
